FAERS Safety Report 5139123-0 (Version None)
Quarter: 2006Q4

REPORT INFORMATION
  Report Type: 
  Country: None (occurrence: None)
  Receive Date: 20061030
  Receipt Date: 20060623
  Transmission Date: 20070319
  Serious: No
  Sender: FDA-Public Use
  Company Number: US-GLAXOSMITHKLINE-A0610172A

PATIENT
  Age: 69 Year
  Sex: Male

DRUGS (7)
  1. ADVAIR HFA [Suspect]
     Indication: ALPHA-1 ANTI-TRYPSIN
     Dosage: 1PUFF TWICE PER DAY
     Route: 055
  2. ALLEGRA-D 12 HOUR [Concomitant]
  3. TOPROL-XL [Concomitant]
  4. AVAPRO [Concomitant]
  5. DIGOXIN [Concomitant]
  6. NEXIUM [Concomitant]
  7. SINGULAIR [Concomitant]

REACTIONS (3)
  - DRUG INEFFECTIVE [None]
  - PHARMACEUTICAL PRODUCT COMPLAINT [None]
  - THERAPEUTIC RESPONSE UNEXPECTED [None]
